FAERS Safety Report 7364380-X (Version None)
Quarter: 2011Q1

REPORT INFORMATION
  Report Type: 
  Country: None (occurrence: None)
  Receive Date: 20110321
  Receipt Date: 20110311
  Transmission Date: 20110831
  Serious: Yes (Death, Life-Threatening, Hospitalization)
  Sender: FDA-Public Use
  Company Number: JP-AMGEN-JPNCT2010011971

PATIENT
  Age: 74 Year
  Sex: Male
  Weight: 57 kg

DRUGS (17)
  1. DEXART [Concomitant]
     Indication: PROPHYLAXIS OF NAUSEA AND VOMITING
     Dosage: 6.6 MG, QD
     Route: 042
     Dates: start: 20100630, end: 20100818
  2. DEXART [Concomitant]
     Route: 042
     Dates: start: 20100630, end: 20100818
  3. PANITUMUMAB [Suspect]
     Dosage: 6 MG/KG, Q2WK
     Route: 041
     Dates: start: 20100805, end: 20100818
  4. FLUOROURACIL [Suspect]
     Route: 041
     Dates: start: 20100630, end: 20100818
  5. FLUOROURACIL [Suspect]
     Indication: COLORECTAL CANCER
     Route: 040
     Dates: start: 20100630, end: 20100818
  6. MINOMYCIN [Concomitant]
     Indication: SKIN DISORDER
     Dosage: 100 MG, BID
     Route: 048
     Dates: start: 20100630, end: 20100727
  7. DALACIN-T [Concomitant]
     Indication: SKIN DISORDER
     Dosage: 2 ML, TID
     Route: 062
     Dates: start: 20100630, end: 20100727
  8. TOPOTECAN [Suspect]
     Indication: COLORECTAL CANCER
     Route: 041
     Dates: start: 20100630, end: 20100818
  9. CALCIUM LEVOFOLINATE [Concomitant]
     Indication: COLORECTAL CANCER
     Route: 041
     Dates: start: 20100630, end: 20100818
  10. MINOMYCIN [Concomitant]
     Route: 048
     Dates: start: 20100630, end: 20100727
  11. NAUZELIN [Concomitant]
     Indication: PROPHYLAXIS OF NAUSEA AND VOMITING
     Dosage: 10 MG, UNK
     Route: 048
     Dates: start: 20100714
  12. PANITUMUMAB [Suspect]
     Indication: COLORECTAL CANCER
     Dosage: 6 MG/KG, Q2WK
     Route: 041
     Dates: start: 20100630, end: 20100714
  13. GRANISETRON HYDROCHLORIDE [Concomitant]
     Dosage: 1 MG, QD
     Route: 042
     Dates: start: 20100630, end: 20100818
  14. NAUZELIN [Concomitant]
     Route: 048
     Dates: start: 20100714
  15. DALACIN-T [Concomitant]
     Route: 062
     Dates: start: 20100630, end: 20100727
  16. RINDERON-VG [Concomitant]
     Route: 062
     Dates: start: 20100630, end: 20100727
  17. RINDERON-VG [Concomitant]
     Indication: SKIN DISORDER
     Dosage: 1 G, TID
     Route: 062
     Dates: start: 20100630, end: 20100727

REACTIONS (7)
  - STOMATITIS [None]
  - DRY SKIN [None]
  - INTERSTITIAL LUNG DISEASE [None]
  - SEPSIS [None]
  - DISSEMINATED INTRAVASCULAR COAGULATION [None]
  - INFECTION [None]
  - COLORECTAL CANCER [None]
